FAERS Safety Report 17825061 (Version 1)
Quarter: 2020Q2

REPORT INFORMATION
  Report Type: Spontaneous
  Country: US (occurrence: US)
  Receive Date: 20200526
  Receipt Date: 20200526
  Transmission Date: 20200714
  Serious: No
  Sender: FDA-Public Use
  Company Number: US-SA-2020SA132596

PATIENT
  Sex: Female

DRUGS (22)
  1. DUPIXENT [Suspect]
     Active Substance: DUPILUMAB
     Dosage: 1 DF, QOW
     Route: 058
  2. ATORVASTATIN [Concomitant]
     Active Substance: ATORVASTATIN
  3. PIOGLITAZONE. [Concomitant]
     Active Substance: PIOGLITAZONE
  4. DICYCLOMINE HCL [Concomitant]
     Active Substance: DICYCLOMINE HYDROCHLORIDE
  5. FLUTICASONE. [Concomitant]
     Active Substance: FLUTICASONE
  6. GLIPIZIDE. [Concomitant]
     Active Substance: GLIPIZIDE
  7. HUMALOG [Concomitant]
     Active Substance: INSULIN LISPRO
  8. IPRATROPIUM [Concomitant]
     Active Substance: IPRATROPIUM
  9. PREDNISONE. [Concomitant]
     Active Substance: PREDNISONE
  10. ADVAIR HFA [Concomitant]
     Active Substance: FLUTICASONE PROPIONATE\SALMETEROL XINAFOATE
  11. MONTELUKAST [Concomitant]
     Active Substance: MONTELUKAST SODIUM
  12. QVAR REDIHALER [Concomitant]
     Active Substance: BECLOMETHASONE DIPROPIONATE
  13. DUPIXENT [Suspect]
     Active Substance: DUPILUMAB
     Indication: RHINITIS
     Dosage: 2 DF, 1X
     Route: 058
     Dates: start: 20200507, end: 20200507
  14. ESOMEPRA [Concomitant]
     Active Substance: ESOMEPRAZOLE
  15. JANUMET [METFORMIN HYDROCHLORIDE;SITAGLIPTIN] [Concomitant]
  16. BRIMONIDINE [Concomitant]
     Active Substance: BRIMONIDINE TARTRATE
  17. LOSARTAN. [Concomitant]
     Active Substance: LOSARTAN
  18. RANITIDINE. [Concomitant]
     Active Substance: RANITIDINE
  19. AZITHROMYCIN ANHYDROUS. [Concomitant]
     Active Substance: AZITHROMYCIN ANHYDROUS
  20. FUROSEMIDE. [Concomitant]
     Active Substance: FUROSEMIDE
  21. ONE TOUCH [Concomitant]
     Active Substance: DEXTROSE
  22. CETIRIZINE [Concomitant]
     Active Substance: CETIRIZINE HYDROCHLORIDE

REACTIONS (3)
  - Productive cough [Not Recovered/Not Resolved]
  - Product use in unapproved indication [Unknown]
  - Dyspnoea [Not Recovered/Not Resolved]
